FAERS Safety Report 4526467-6 (Version None)
Quarter: 2004Q4

REPORT INFORMATION
  Report Type: 
  Country: None (occurrence: None)
  Receive Date: 20041214
  Receipt Date: 20041021
  Transmission Date: 20050328
  Serious: Yes (Hospitalization)
  Sender: FDA-Public Use
  Company Number: US-MERCK-0410USA03378

PATIENT
  Age: 84 Year
  Sex: Male

DRUGS (5)
  1. VIOXX [Suspect]
     Indication: ARTHRITIS
     Route: 048
     Dates: start: 19990601, end: 20020101
  2. VIOXX [Suspect]
     Route: 048
     Dates: start: 20020101, end: 20031201
  3. VITAMINS (UNSPECIFIED) [Concomitant]
     Route: 065
  4. PLAVIX [Concomitant]
     Route: 048
  5. ASPIRIN [Concomitant]
     Route: 048
     Dates: start: 20031006

REACTIONS (22)
  - ACTINIC KERATOSIS [None]
  - ADVERSE EVENT [None]
  - ANXIETY [None]
  - BASAL CELL CARCINOMA [None]
  - CARPAL TUNNEL SYNDROME [None]
  - DIZZINESS [None]
  - EYELID OEDEMA [None]
  - FATIGUE [None]
  - FEELING HOT [None]
  - HAEMORRHAGE [None]
  - HYPERTENSION [None]
  - HYPOAESTHESIA [None]
  - JOINT SWELLING [None]
  - PAIN IN EXTREMITY [None]
  - SKIN LESION [None]
  - SPEECH DISORDER [None]
  - SQUAMOUS CELL CARCINOMA [None]
  - STRESS SYMPTOMS [None]
  - SYNCOPE [None]
  - THROMBOSIS [None]
  - TRANSIENT ISCHAEMIC ATTACK [None]
  - TREMOR [None]
